FAERS Safety Report 6378035-1 (Version None)
Quarter: 2009Q3

REPORT INFORMATION
  Report Type: 
  Country: None (occurrence: None)
  Receive Date: 20090925
  Receipt Date: 20090917
  Transmission Date: 20100115
  Serious: Yes (Other)
  Sender: FDA-Public Use
  Company Number: PHHY2009ES39874

PATIENT
  Age: 35 Year
  Sex: Male

DRUGS (10)
  1. LEPONEX [Suspect]
     Indication: PSYCHOTIC DISORDER
     Dosage: 400 MG, QD
     Route: 048
     Dates: start: 20090101, end: 20090716
  2. METADON [Concomitant]
     Dosage: 18 ML, QD
     Route: 048
     Dates: start: 19980101
  3. ACETAMINOPHEN [Concomitant]
     Dosage: 3 G, QD
     Route: 048
  4. ARTANE [Concomitant]
     Dosage: 6 MG, QD
     Route: 048
  5. BENERVA [Concomitant]
     Dosage: 300 MG, QD
     Route: 048
  6. CLARITHROMYCIN [Concomitant]
     Dosage: 1 G, QD
     Route: 048
     Dates: start: 20070714
  7. LITHIUM CARBONATE [Concomitant]
     Dosage: 800 MG, QD
     Route: 048
  8. FLUNITRAZEPAM [Concomitant]
     Dosage: 1 MG
     Route: 048
  9. SINOGAN [Concomitant]
     Dosage: 30 DRP, QD
     Route: 048
  10. TRANXILIUM [Concomitant]
     Dosage: 45 MG, QD
     Route: 048

REACTIONS (5)
  - ACUTE RESPIRATORY FAILURE [None]
  - INFLUENZA [None]
  - LEUKOPENIA [None]
  - PRODUCTIVE COUGH [None]
  - PYREXIA [None]
